FAERS Safety Report 12912371 (Version 4)
Quarter: 2016Q4

REPORT INFORMATION
  Report Type: Spontaneous
  Country: US (occurrence: US)
  Receive Date: 20161104
  Receipt Date: 20161201
  Transmission Date: 20170207
  Serious: Yes (Other)
  Sender: FDA-Public Use
  Company Number: US-OMEROS CORPORATION-2016OME00037

PATIENT
  Age: 52 Year
  Sex: Female
  Weight: 62.13 kg

DRUGS (18)
  1. CIPRO [Concomitant]
     Active Substance: CIPROFLOXACIN HYDROCHLORIDE
     Dosage: UNK
     Dates: start: 20161017
  2. TETRACAINE. [Concomitant]
     Active Substance: TETRACAINE
     Dosage: UNK
     Dates: start: 20161017, end: 20161017
  3. MIOSTAT [Concomitant]
     Active Substance: CARBACHOL
     Dosage: UNK
     Dates: start: 20161017, end: 20161017
  4. DUOVISC [Concomitant]
     Active Substance: CHONDROITIN SULFATE A\HYALURONATE SODIUM
  5. BSS (ALCON) [Concomitant]
     Dosage: UNK
     Dates: start: 20161017, end: 20161017
  6. ACETAZOLAMIDE. [Concomitant]
     Active Substance: ACETAZOLAMIDE
     Dosage: UNK
     Route: 048
     Dates: start: 20161017
  7. PHENYLEPHRINE [Concomitant]
     Active Substance: PHENYLEPHRINE\PHENYLEPHRINE HYDROCHLORIDE
     Dosage: UNK
     Dates: start: 20161017
  8. CIPRO [Concomitant]
     Active Substance: CIPROFLOXACIN HYDROCHLORIDE
     Dosage: UNK, EVERY 5 MINUTES X 3
     Dates: start: 20161017, end: 20161017
  9. LIDOCAINE PRESERVATIVE FREE [Concomitant]
     Dosage: UNK
     Dates: start: 20161017, end: 20161017
  10. CYCLOPENTOLATE. [Concomitant]
     Active Substance: CYCLOPENTOLATE
     Dosage: UNK
     Dates: start: 20161017, end: 20161017
  11. BETADINE [Concomitant]
     Active Substance: POVIDONE-IODINE
     Dosage: UNK
     Dates: start: 20161017, end: 20161017
  12. OMIDRIA [Suspect]
     Active Substance: KETOROLAC\PHENYLEPHRINE
     Indication: CATARACT OPERATION
     Dosage: UNK UNK, ONCE
     Dates: start: 20161017, end: 20161017
  13. KETOROLAC [Concomitant]
     Active Substance: KETOROLAC\KETOROLAC TROMETHAMINE
     Dosage: UNK
     Dates: start: 20161017
  14. MOTRIN [Concomitant]
     Active Substance: IBUPROFEN
  15. KETOROLAC [Concomitant]
     Active Substance: KETOROLAC\KETOROLAC TROMETHAMINE
     Dosage: UNK
     Dates: start: 20161017, end: 20161017
  16. ZYRTEC [Concomitant]
     Active Substance: CETIRIZINE HYDROCHLORIDE
  17. ATENOLOL. [Concomitant]
     Active Substance: ATENOLOL
  18. PRED FORTE [Concomitant]
     Active Substance: PREDNISOLONE ACETATE
     Dosage: UNK
     Dates: start: 20161017

REACTIONS (2)
  - Toxic anterior segment syndrome [Recovered/Resolved]
  - Keratitis [Recovered/Resolved]

NARRATIVE: CASE EVENT DATE: 20161018
